FAERS Safety Report 7826203-1 (Version None)
Quarter: 2011Q4

REPORT INFORMATION
  Report Type: 
  Country: None (occurrence: None)
  Receive Date: 20111020
  Receipt Date: 20111011
  Transmission Date: 20120403
  Serious: Yes (Hospitalization)
  Sender: FDA-Public Use
  Company Number: US-BIOGENIDEC-2011BI039252

PATIENT
  Age: 32 Year
  Sex: Female

DRUGS (3)
  1. FIORICET [Concomitant]
     Indication: MIGRAINE
  2. TYSABRI [Suspect]
     Indication: MULTIPLE SCLEROSIS
     Route: 042
     Dates: start: 20110803
  3. IMITREX [Concomitant]
     Indication: MIGRAINE

REACTIONS (6)
  - HEADACHE [None]
  - HYPOPHAGIA [None]
  - URINARY TRACT INFECTION [None]
  - GASTRIC DISORDER [None]
  - GASTRIC INFECTION [None]
  - ABDOMINAL PAIN UPPER [None]
